FAERS Safety Report 14898142 (Version 3)
Quarter: 2020Q1

REPORT INFORMATION
  Report Type: Report from Study
  Country: US (occurrence: US)
  Receive Date: 20180515
  Receipt Date: 20200108
  Transmission Date: 20200409
  Serious: No
  Sender: FDA-Public Use
  Company Number: US-SA-2018SA041996

PATIENT
  Age: 57 Year
  Sex: Female

DRUGS (1)
  1. INSULIN GLARGINE [Suspect]
     Active Substance: INSULIN GLARGINE
     Indication: TYPE 1 DIABETES MELLITUS
     Dosage: 50 IU, QD
     Route: 051

REACTIONS (5)
  - Hypoglycaemia [Unknown]
  - Hyperglycaemia [Unknown]
  - Dry eye [Not Recovered/Not Resolved]
  - Fall [Unknown]
  - Visual impairment [Unknown]

NARRATIVE: CASE EVENT DATE: 20171220
